FAERS Safety Report 14627402 (Version 1)
Quarter: 2018Q1

REPORT INFORMATION
  Report Type: Spontaneous
  Country: JP (occurrence: JP)
  Receive Date: 20180312
  Receipt Date: 20180312
  Transmission Date: 20180509
  Serious: Yes (Death, Other)
  Sender: FDA-Public Use
  Company Number: JP-JNJFOC-20171125858

PATIENT
  Age: 74 Year
  Sex: Female
  Weight: 53.4 kg

DRUGS (8)
  1. TAKEPRON [Concomitant]
     Active Substance: LANSOPRAZOLE
     Indication: GASTRITIS
     Route: 048
     Dates: start: 20161212, end: 20170510
  2. XARELTO [Suspect]
     Active Substance: RIVAROXABAN
     Indication: EMBOLISM VENOUS
     Route: 048
     Dates: start: 20170209, end: 20170301
  3. FRUSEMIDE [Concomitant]
     Active Substance: FUROSEMIDE
     Indication: LYMPHOEDEMA
     Route: 048
     Dates: start: 20170216, end: 20170510
  4. OXYFAST [Concomitant]
     Active Substance: OXYCODONE
     Indication: CANCER PAIN
     Route: 062
     Dates: start: 20170417, end: 20170512
  5. TENELIA [Concomitant]
     Active Substance: TENELIGLIPTIN
     Indication: DIABETES MELLITUS
     Route: 048
     Dates: end: 20170510
  6. ACETAMINOPHEN. [Concomitant]
     Active Substance: ACETAMINOPHEN
     Indication: CANCER PAIN
     Route: 042
     Dates: start: 20170505, end: 20170512
  7. MAGNESIUM OXIDE. [Concomitant]
     Active Substance: MAGNESIUM OXIDE
     Indication: CONSTIPATION
     Route: 048
     Dates: end: 20170512
  8. XARELTO [Suspect]
     Active Substance: RIVAROXABAN
     Indication: EMBOLISM VENOUS
     Route: 048
     Dates: start: 20170302, end: 20170510

REACTIONS (2)
  - Colon cancer [Fatal]
  - Melaena [Recovered/Resolved]

NARRATIVE: CASE EVENT DATE: 20170218
